FAERS Safety Report 5071627-1 (Version None)
Quarter: 2006Q3

REPORT INFORMATION
  Report Type: 
  Country: None (occurrence: None)
  Receive Date: 20060804
  Receipt Date: 20060718
  Transmission Date: 20061208
  Serious: Yes (Hospitalization)
  Sender: FDA-Public Use
  Company Number: JP-MERCK-0607USA04205

PATIENT
  Age: 72 Year
  Sex: Male

DRUGS (10)
  1. PEPCID RPD [Suspect]
     Route: 048
     Dates: end: 20060718
  2. COZAAR [Suspect]
     Route: 048
  3. AMOBAN [Suspect]
     Route: 048
  4. ASPIRIN [Concomitant]
     Indication: MYOCARDIAL INFARCTION
     Route: 048
  5. PANALDINE [Concomitant]
     Indication: MYOCARDIAL INFARCTION
     Route: 048
  6. LIVALO [Concomitant]
     Route: 048
  7. WARFARIN [Concomitant]
     Indication: MYOCARDIAL INFARCTION
     Route: 048
  8. SELBEX [Concomitant]
     Route: 048
  9. SIGMART [Concomitant]
     Route: 048
  10. LIDOMEX [Concomitant]
     Route: 061

REACTIONS (6)
  - AGGRESSION [None]
  - AGITATION [None]
  - AMNESIA [None]
  - CARDIAC FAILURE [None]
  - DELIRIUM [None]
  - SOMNOLENCE [None]
